FAERS Safety Report 10732468 (Version 3)
Quarter: 2016Q2

REPORT INFORMATION
  Report Type: Spontaneous
  Country: US (occurrence: US)
  Receive Date: 20150123
  Receipt Date: 20160426
  Transmission Date: 20160815
  Serious: No
  Sender: FDA-Public Use
  Company Number: US-PFIZER INC-2015029648

PATIENT
  Age: 64 Year
  Sex: Female
  Weight: 78 kg

DRUGS (19)
  1. TENORMIN [Concomitant]
     Active Substance: ATENOLOL
     Dosage: 1 DF, 2X/DAY (50)
     Route: 048
  2. LEVOTHYROXINE SODIUM. [Concomitant]
     Active Substance: LEVOTHYROXINE SODIUM
     Dosage: 175 UG, 1X/DAY
     Route: 048
     Dates: start: 20150309
  3. FLEXERIL [Concomitant]
     Active Substance: CYCLOBENZAPRINE HYDROCHLORIDE
     Dosage: 1 DF, 3X/DAY (10)
     Route: 048
  4. PREDNISONE. [Concomitant]
     Active Substance: PREDNISONE
     Dosage: 10 MG, DAILY
     Route: 048
     Dates: start: 20151211
  5. FELDENE [Concomitant]
     Active Substance: PIROXICAM
     Dosage: 20 MG, 1X/DAY (WITH FOOD)
     Route: 048
     Dates: start: 20150706
  6. CHANTIX [Concomitant]
     Active Substance: VARENICLINE TARTRATE
     Dosage: 1 MG, 2X/DAY
     Route: 048
     Dates: start: 20150706
  7. AMITRIPTYLINE HCL [Concomitant]
     Active Substance: AMITRIPTYLINE
     Dosage: 10 MG, 1X/DAY (AT BEDTIME)
     Route: 048
  8. LYRICA [Suspect]
     Active Substance: PREGABALIN
     Indication: NEUROPATHY PERIPHERAL
     Dosage: UNK
  9. FLONASE [Concomitant]
     Active Substance: FLUTICASONE PROPIONATE
     Indication: HYPERSENSITIVITY
     Dosage: UNK, 1X/DAY (50 MCG/ACT SUSPENSION, 1 SPRAY IN EACH NOSTRIL)
     Route: 045
     Dates: start: 20150518
  10. ASPIRIN. [Concomitant]
     Active Substance: ASPIRIN
     Dosage: 81 MG, 1X/DAY
     Route: 048
  11. LYRICA [Suspect]
     Active Substance: PREGABALIN
     Indication: INTERVERTEBRAL DISC DEGENERATION
     Dosage: 150 MG, 2X/DAY
     Route: 048
     Dates: start: 20150105
  12. LEVOTHYROXINE. [Concomitant]
     Active Substance: LEVOTHYROXINE
     Indication: HYPOTHYROIDISM
     Dosage: 0.175 UG, 1X/DAY
     Route: 048
  13. CHANTIX [Concomitant]
     Active Substance: VARENICLINE TARTRATE
     Dosage: UNK (0.5 MG X 11 + 1 MG X 42, 1 TAB Q AM X3 DAYS, THE BID X3 DAYS, THEN 2 PO QAM/1 Q PM X3 DAYS)
     Route: 048
     Dates: start: 20150706
  14. ACETAMINOPHEN\HYDROCODONE BITARTRATE [Concomitant]
     Active Substance: ACETAMINOPHEN\HYDROCODONE BITARTRATE
     Dosage: UNK UNK, AS NEEDED (HYDROCODONE: 5 MG, ACETAMINOPHEN: 325 MG, Q 6 HRS PRN)
     Route: 048
  15. PROAIR HFA [Concomitant]
     Active Substance: ALBUTEROL SULFATE
     Dosage: UNK, AS NEEDED (108 (90 BASE) MCG/ACT, 2 PUFFS INHALATION EVERY 4 HRS)
     Route: 045
  16. PEPCID AC [Concomitant]
     Active Substance: FAMOTIDINE
     Dosage: 10 MG, AS NEEDED (TWICE A DAY)
     Route: 048
  17. LYRICA [Suspect]
     Active Substance: PREGABALIN
     Indication: FIBROMYALGIA
     Dosage: 150 MG, 2X/DAY
     Route: 048
  18. ZYRTEC [Concomitant]
     Active Substance: CETIRIZINE HYDROCHLORIDE
     Dosage: 1 DF, DAILY (10)
     Route: 048
  19. ATENOLOL. [Concomitant]
     Active Substance: ATENOLOL
     Indication: TACHYCARDIA
     Dosage: 50 MG, 2X/DAY
     Route: 048

REACTIONS (1)
  - Pain [Unknown]
